FAERS Safety Report 23457137 (Version 1)
Quarter: 2024Q1

REPORT INFORMATION
  Report Type: Spontaneous
  Country: US (occurrence: None)
  Receive Date: 20240129
  Receipt Date: 20240129
  Transmission Date: 20240410
  Serious: Yes (unspecified)
  Sender: FDA-Public Use
  Company Number: None

PATIENT

DRUGS (1)
  1. ALBUTEROL SULFATE [Suspect]
     Active Substance: ALBUTEROL SULFATE

REACTIONS (5)
  - Product dispensing error [None]
  - Product selection error [None]
  - Product packaging confusion [None]
  - Product outer packaging issue [None]
  - Physical product label issue [None]

NARRATIVE: CASE EVENT DATE: 20240109
